FAERS Safety Report 6361608-X (Version None)
Quarter: 2009Q3

REPORT INFORMATION
  Report Type: 
  Country: None (occurrence: None)
  Receive Date: 20090918
  Receipt Date: 20090909
  Transmission Date: 20100115
  Serious: Yes (Disabling, Other)
  Sender: FDA-Public Use
  Company Number: PHHY2009AU36183

PATIENT
  Sex: Male
  Weight: 185 kg

DRUGS (9)
  1. EXJADE [Suspect]
     Indication: ANAEMIA
     Dosage: 1000 MG PER DAY
     Route: 048
     Dates: start: 20090203, end: 20090807
  2. EXJADE [Suspect]
     Indication: TRANSFUSION
  3. ALLOPURINOL [Concomitant]
  4. ATENOLOL [Concomitant]
  5. ISCOVER [Concomitant]
  6. TRAMADOL HCL [Concomitant]
     Dosage: UNK
  7. NEXIUM [Concomitant]
  8. LIPITOR [Concomitant]
  9. PRAZSOIN HCL [Concomitant]

REACTIONS (6)
  - DYSPHAGIA [None]
  - IMMUNE SYSTEM DISORDER [None]
  - LIP ULCERATION [None]
  - MOUTH ULCERATION [None]
  - PHARYNGEAL OEDEMA [None]
  - SWOLLEN TONGUE [None]
